FAERS Safety Report 10501388 (Version 1)
Quarter: 2014Q4

REPORT INFORMATION
  Report Type: Spontaneous
  Country: US (occurrence: None)
  Receive Date: 20141006
  Receipt Date: 20141006
  Transmission Date: 20150528
  Serious: No
  Sender: FDA-Public Use
  Company Number: None

PATIENT
  Age: 78 Year
  Sex: Male
  Weight: 85.4 kg

DRUGS (2)
  1. RIVAROXABAN [Suspect]
     Active Substance: RIVAROXABAN
     Indication: ATRIAL FIBRILLATION
     Route: 048
     Dates: start: 20130601, end: 20130613
  2. ASPIRIN. [Suspect]
     Active Substance: ASPIRIN
     Route: 048
     Dates: start: 20130601, end: 20130613

REACTIONS (5)
  - Haemorrhoids [None]
  - Gastric haemorrhage [None]
  - Rectal haemorrhage [None]
  - Haemoglobin decreased [None]
  - Diverticulum [None]

NARRATIVE: CASE EVENT DATE: 20130613
